FAERS Safety Report 16871500 (Version 1)
Quarter: 2019Q4

REPORT INFORMATION
  Report Type: Spontaneous
  Country: GB (occurrence: GB)
  Receive Date: 20191001
  Receipt Date: 20191001
  Transmission Date: 20200122
  Serious: Yes (Hospitalization)
  Sender: FDA-Public Use
  Company Number: GB-TEVA-2019-GB-1114786

PATIENT
  Age: 77 Year
  Sex: Male

DRUGS (24)
  1. CONSTELLA [Concomitant]
     Active Substance: LINACLOTIDE
     Dosage: SEPERATE
  2. PARACETAMOL [Concomitant]
     Active Substance: ACETAMINOPHEN
  3. NICORANDIL [Concomitant]
     Active Substance: NICORANDIL
  4. ISOSORBIDE MONONITRATE. [Concomitant]
     Active Substance: ISOSORBIDE MONONITRATE
     Dosage: MORNING. ONE AND A HALF
  5. VENTOLIN [Concomitant]
     Active Substance: ALBUTEROL SULFATE
     Dosage: 100 MICROGRAMS/DOSE. PUFFS.
  6. SALBUTAMOL [Concomitant]
     Active Substance: ALBUTEROL
     Dosage: 100MICROGRAMS/DOSE EVOHALER TWO PUFFS
  7. CASSIA [Concomitant]
     Dosage: NIGHT
  8. ZOMORPH [Concomitant]
     Active Substance: MORPHINE SULFATE
     Dosage: TO TOTAL 80MG TWICE DAILY
  9. RANOLAZINE. [Concomitant]
     Active Substance: RANOLAZINE
  10. UNIPHYLLIN CONTINUS [Concomitant]
     Active Substance: THEOPHYLLINE ANHYDROUS
     Dosage: NIGHT
  11. CLOPIDOGREL [Suspect]
     Active Substance: CLOPIDOGREL BISULFATE
     Indication: ACUTE MYOCARDIAL INFARCTION
     Route: 065
  12. BISOPROLOL [Concomitant]
     Active Substance: BISOPROLOL
  13. ZOMORPH [Concomitant]
     Active Substance: MORPHINE SULFATE
     Dosage: TO TOTAL 80MG TWICE DAILY
  14. FERROUS FUMARATE [Concomitant]
     Active Substance: FERROUS FUMARATE
  15. LINAGLIPTIN [Concomitant]
     Active Substance: LINAGLIPTIN
  16. TAMSULOSIN [Concomitant]
     Active Substance: TAMSULOSIN
  17. DOCUSATE [Concomitant]
     Active Substance: DOCUSATE
     Dosage: MORNING AND NIGHT
  18. GLYCERYL TRINITRATE [Concomitant]
     Active Substance: NITROGLYCERIN
     Dosage: 400MICROGRAMS/DOSE PUMP
  19. WARFARIN [Suspect]
     Active Substance: WARFARIN
     Indication: ACUTE MYOCARDIAL INFARCTION
     Dosage: TAKE AS PRESCRIBED. TARGET RANGE 2-3, DOSE: 5MG MON, WED AND FRI THEN 6MG REST OF WEEK.
     Route: 065
  20. ATORVASTATIN [Concomitant]
     Active Substance: ATORVASTATIN
     Dosage: NIGHT
  21. BUMETANIDE. [Concomitant]
     Active Substance: BUMETANIDE
     Dosage: MORNING AND LUNCTIME
  22. TRIMBOW [Concomitant]
     Active Substance: BECLOMETHASONE DIPROPIONATE\FORMOTEROL FUMARATE\GLYCOPYRROLATE
     Dosage: 87 MICROGRAMS/5 MICROGRAMS/9 MICROGRAMS. PUFF
  23. OMEPRAZOLE. [Concomitant]
     Active Substance: OMEPRAZOLE
  24. SPIRONOLACTONE. [Concomitant]
     Active Substance: SPIRONOLACTONE
     Dosage: MORNING

REACTIONS (2)
  - Epistaxis [Recovered/Resolved]
  - Rectal haemorrhage [Recovered/Resolved]
